FAERS Safety Report 9832869 (Version 1)
Quarter: 2014Q1

REPORT INFORMATION
  Report Type: Spontaneous
  Country: US (occurrence: US)
  Receive Date: 20140121
  Receipt Date: 20140121
  Transmission Date: 20141002
  Serious: No
  Sender: FDA-Public Use
  Company Number: US-PFIZER INC-2014015877

PATIENT
  Age: 82 Year
  Sex: Female
  Weight: 48.07 kg

DRUGS (2)
  1. ATORVASTATIN CALCIUM [Suspect]
     Dosage: 20 MG, ONCE A DAY
     Route: 048
     Dates: start: 2013, end: 2013
  2. OMEPRAZOLE [Concomitant]
     Dosage: UNK

REACTIONS (3)
  - Blood cholesterol increased [Unknown]
  - Myalgia [Unknown]
  - Myalgia [Unknown]
